FAERS Safety Report 25560504 (Version 1)
Quarter: 2025Q3

REPORT INFORMATION
  Report Type: Spontaneous
  Country: US (occurrence: US)
  Receive Date: 20250715
  Receipt Date: 20250715
  Transmission Date: 20251020
  Serious: No
  Sender: NOVO NORDISK
  Company Number: US-NOVOPROD-1391914

PATIENT
  Age: 32 Year
  Sex: Male

DRUGS (3)
  1. OZEMPIC [Suspect]
     Active Substance: SEMAGLUTIDE
     Indication: Product used for unknown indication
  2. LUPKYNIS [Suspect]
     Active Substance: VOCLOSPORIN
     Indication: Lupus nephritis
     Route: 048
     Dates: start: 20240202
  3. BENLYSTA [Concomitant]
     Active Substance: BELIMUMAB
     Indication: Product used for unknown indication
     Route: 048

REACTIONS (6)
  - Gastrointestinal disorder [Unknown]
  - Palpitations [Unknown]
  - Muscle spasms [Unknown]
  - Myalgia [Unknown]
  - Fatigue [Unknown]
  - Ear infection [Unknown]
